FAERS Safety Report 25092345 (Version 1)
Quarter: 2025Q1

REPORT INFORMATION
  Report Type: Spontaneous
  Country: JP (occurrence: JP)
  Receive Date: 20250319
  Receipt Date: 20250319
  Transmission Date: 20250408
  Serious: Yes (Hospitalization, Other)
  Sender: RANBAXY
  Company Number: JP-SUN PHARMACEUTICAL INDUSTRIES LTD-2025R1-498092

PATIENT
  Age: 9 Decade
  Sex: Male

DRUGS (2)
  1. GEMCITABINE HYDROCHLORIDE [Suspect]
     Active Substance: GEMCITABINE HYDROCHLORIDE
     Indication: Bile duct cancer
     Route: 065
  2. TS-1 [Suspect]
     Active Substance: GIMERACIL\OTERACIL POTASSIUM\TEGAFUR
     Indication: Bile duct cancer
     Route: 065

REACTIONS (5)
  - Enteritis infectious [Unknown]
  - Diarrhoea [Unknown]
  - Ascites [Recovered/Resolved]
  - Oedema peripheral [Unknown]
  - Hypoproteinaemia [Unknown]
